FAERS Safety Report 7603964-8 (Version None)
Quarter: 2011Q3

REPORT INFORMATION
  Report Type: 
  Country: None (occurrence: None)
  Receive Date: 20110712
  Receipt Date: 20110701
  Transmission Date: 20111222
  Serious: Yes (Hospitalization, Other)
  Sender: FDA-Public Use
  Company Number: JP-ROCHE-785205

PATIENT
  Sex: Female
  Weight: 33 kg

DRUGS (20)
  1. DEXAMETHASONE [Suspect]
     Route: 041
     Dates: start: 20110516, end: 20110519
  2. METHYLPREDNISOLONE SODIUM SUCCINATE [Concomitant]
     Route: 040
     Dates: start: 20110427, end: 20110429
  3. IBUPROFEN [Concomitant]
     Route: 048
     Dates: start: 20110328, end: 20110410
  4. ACYCLOVIR [Suspect]
     Dosage: DOSE FORM: PER ORAL AGENT
     Route: 048
     Dates: start: 20110428, end: 20110512
  5. PREDNISOLONE [Concomitant]
     Dosage: DOSE FORM: PER ORAL AGENT
     Route: 048
     Dates: start: 20110527, end: 20110530
  6. ACYCLOVIR [Suspect]
     Dosage: DOSE FORM: PER ORAL AGENT
     Route: 048
     Dates: start: 20110529, end: 20110610
  7. PREDNISOLONE [Concomitant]
     Dosage: DOSE FORM: PER ORAL AGENT
     Route: 048
     Dates: start: 20110531
  8. IBUPROFEN [Concomitant]
     Route: 048
     Dates: start: 20110411, end: 20110425
  9. DEXAMETHASONE [Suspect]
     Route: 041
     Dates: start: 20110502, end: 20110515
  10. DEXAMETHASONE [Suspect]
     Route: 041
     Dates: start: 20110520, end: 20110523
  11. FAMOTIDINE [Suspect]
     Route: 048
     Dates: start: 20110419, end: 20110610
  12. TOCILIZUMAB [Suspect]
     Route: 041
     Dates: start: 20110519, end: 20110610
  13. DEXAMETHASONE [Suspect]
     Indication: JUVENILE ARTHRITIS
     Dosage: DOSAGE IS UNCERTAIN
     Route: 041
     Dates: start: 20110426, end: 20110426
  14. PREDNISOLONE [Concomitant]
     Dosage: DOSE FORM: PER ORAL AGENT
     Route: 048
     Dates: start: 20110424, end: 20110425
  15. METHOTREXATE [Concomitant]
     Route: 048
     Dates: start: 20110324, end: 20110419
  16. TOCILIZUMAB [Suspect]
     Route: 041
     Dates: start: 20110512, end: 20110512
  17. DEXAMETHASONE [Suspect]
     Route: 041
     Dates: start: 20110430, end: 20110501
  18. DEXAMETHASONE [Suspect]
     Route: 041
     Dates: start: 20110524, end: 20110526
  19. PREDNISOLONE [Concomitant]
     Dosage: DOSE FORM: PER ORAL AGENT
     Route: 048
     Dates: start: 20110324, end: 20110101
  20. METHYLPREDNISOLONE SODIUM SUCCINATE [Concomitant]
     Route: 040
     Dates: start: 20110421, end: 20110423

REACTIONS (2)
  - HEPATITIS [None]
  - HEPATIC FUNCTION ABNORMAL [None]
